FAERS Safety Report 7560529-4 (Version None)
Quarter: 2011Q2

REPORT INFORMATION
  Report Type: 
  Country: None (occurrence: None)
  Receive Date: 20110621
  Receipt Date: 20110614
  Transmission Date: 20111010
  Serious: Yes (Hospitalization, Disabling, Other)
  Sender: FDA-Public Use
  Company Number: NL-GENZYME-CLOF-1001506

PATIENT
  Sex: Male
  Weight: 95 kg

DRUGS (11)
  1. IMIPENEM [Concomitant]
     Indication: FEBRILE NEUTROPENIA
     Dosage: 500 MG, QID
     Route: 042
     Dates: start: 20110314, end: 20110317
  2. CIPROFLOXACIN [Concomitant]
     Indication: PRODUCT USED FOR UNKNOWN INDICATION
     Dosage: 500 MG, BID
     Route: 048
     Dates: start: 20110302, end: 20110319
  3. AMSACRINE [Suspect]
     Indication: ACUTE LEUKAEMIA
     Dosage: 270 MG, QDX3
     Route: 042
     Dates: start: 20110306, end: 20110308
  4. PANTOPRAZOLE [Concomitant]
     Indication: DYSPEPSIA
     Dosage: 40 MG, UNK
     Route: 048
     Dates: start: 20110302, end: 20110319
  5. METOPROLOL TARTRATE [Concomitant]
     Indication: CARDIAC FAILURE
     Dosage: 100 MG, UNK
     Route: 048
     Dates: start: 20110302, end: 20110319
  6. CILASTATIN [Concomitant]
     Indication: FEBRILE NEUTROPENIA
     Dosage: 500 MG, QID
     Route: 042
     Dates: start: 20110314, end: 20110317
  7. FLUCONAZOLE [Concomitant]
     Indication: PRODUCT USED FOR UNKNOWN INDICATION
     Dosage: 400 MG, UNK
     Route: 048
     Dates: start: 20110302, end: 20110319
  8. AUGMENTIN '125' [Concomitant]
     Indication: CAECITIS
     Dosage: 2 G, QID
     Route: 042
     Dates: start: 20110317, end: 20110319
  9. AMITRIPTYLINE HCL [Concomitant]
     Indication: HEADACHE
     Dosage: 25 MG, UNK
     Route: 048
     Dates: start: 20110302, end: 20110319
  10. EVOLTRA [Suspect]
     Indication: ACUTE LEUKAEMIA
     Dosage: UNK
     Route: 065
     Dates: start: 20110101, end: 20110101
  11. CYTARABINE [Suspect]
     Indication: ACUTE LEUKAEMIA
     Dosage: 2300 MG, UNK
     Route: 042
     Dates: start: 20110303, end: 20110308

REACTIONS (2)
  - PANCYTOPENIA [None]
  - HAEMATURIA [None]
